FAERS Safety Report 6813738-3 (Version None)
Quarter: 2010Q3

REPORT INFORMATION
  Report Type: 
  Country: None (occurrence: None)
  Receive Date: 20100701
  Receipt Date: 20100628
  Transmission Date: 20110219
  Serious: Yes (Hospitalization)
  Sender: FDA-Public Use
  Company Number: FR-MERCK-1004FRA00082

PATIENT
  Age: 34 Year
  Sex: Female

DRUGS (18)
  1. EMEND [Suspect]
     Route: 048
     Dates: end: 20100211
  2. EMEND [Suspect]
     Route: 048
     Dates: start: 20100218
  3. BROMAZEPAM [Suspect]
     Route: 048
     Dates: end: 20100211
  4. ONDANSETRON HYDROCHLORIDE [Suspect]
     Route: 065
     Dates: start: 20100128, end: 20100211
  5. ONDANSETRON HYDROCHLORIDE [Suspect]
     Route: 065
     Dates: start: 20100218
  6. ESOMEPRAZOLE MAGNESIUM [Suspect]
     Route: 065
     Dates: end: 20100211
  7. ESOMEPRAZOLE MAGNESIUM [Suspect]
     Route: 065
     Dates: start: 20100303
  8. PHLOROGLUCINOL AND TRIMETHYLPHLOROGLUCINOL [Suspect]
     Route: 065
     Dates: end: 20100211
  9. PHLOROGLUCINOL AND TRIMETHYLPHLOROGLUCINOL [Suspect]
     Route: 065
     Dates: start: 20100218
  10. TRIMEBUTINE MALEATE [Suspect]
     Route: 065
     Dates: end: 20100211
  11. TRIMEBUTINE MALEATE [Suspect]
     Route: 065
     Dates: start: 20100218
  12. PREDNISOLONE SODIUM METAZOATE [Suspect]
     Route: 065
     Dates: end: 20100211
  13. PREDNISOLONE SODIUM METAZOATE [Suspect]
     Route: 065
     Dates: start: 20100309
  14. METOPIMAZINE [Suspect]
     Route: 065
     Dates: end: 20100211
  15. DOMPERIDONE [Concomitant]
     Route: 065
  16. METOCLOPRAMIDE HYDROCHLORIDE [Concomitant]
     Route: 065
  17. ALUMINUM HYDROXIDE AND MAGNESIUM TRISILICATE [Concomitant]
     Route: 065
  18. CISPLATIN [Concomitant]
     Route: 065

REACTIONS (1)
  - CYTOLYTIC HEPATITIS [None]
